FAERS Safety Report 10103999 (Version 1)
Quarter: 2014Q2

REPORT INFORMATION
  Report Type: Spontaneous
  Country: FR (occurrence: FR)
  Receive Date: 20140424
  Receipt Date: 20140424
  Transmission Date: 20141212
  Serious: Yes (Other)
  Sender: FDA-Public Use
  Company Number: FR-CELGENEUS-056-21880-14042823

PATIENT
  Age: 46 Year
  Sex: Male

DRUGS (5)
  1. REVLIMID [Suspect]
     Indication: PLASMA CELL MYELOMA
     Route: 048
     Dates: start: 201209
  2. REVLIMID [Suspect]
     Route: 048
     Dates: start: 201304
  3. DEXAMETHASONE [Concomitant]
     Indication: PLASMA CELL MYELOMA
     Route: 065
     Dates: start: 201209
  4. DEXAMETHASONE [Concomitant]
     Route: 065
     Dates: start: 201304
  5. ENDOXAN [Concomitant]
     Indication: PLASMA CELL MYELOMA
     Route: 065
     Dates: start: 201304

REACTIONS (2)
  - Myelodysplastic syndrome [Unknown]
  - Anaemia [Unknown]
